FAERS Safety Report 7562418-8 (Version None)
Quarter: 2011Q2

REPORT INFORMATION
  Report Type: 
  Country: None (occurrence: None)
  Receive Date: 20110622
  Receipt Date: 20110614
  Transmission Date: 20111010
  Serious: Yes (Hospitalization)
  Sender: FDA-Public Use
  Company Number: JP-ASTELLAS-2011JP000539

PATIENT
  Sex: Male

DRUGS (11)
  1. VESICARE [Suspect]
     Indication: HYPERTONIC BLADDER
     Dosage: 5 MG, UID/QD
     Route: 048
     Dates: start: 20091215, end: 20101208
  2. CELECOXIB [Suspect]
     Indication: OSTEOARTHRITIS
     Dosage: 100 MG, BID
     Route: 048
     Dates: start: 20071225, end: 20101208
  3. HOCHUUEKKITOU [Suspect]
     Indication: MALAISE
     Dosage: 2.5 G, BID
     Route: 048
     Dates: start: 20060616, end: 20101208
  4. HOKUNALIN [Concomitant]
     Indication: ASTHMA
     Dosage: 2 MG, UID/QD
     Route: 062
     Dates: start: 20071001, end: 20101208
  5. MONTELUKAST SODIUM [Suspect]
     Indication: ASTHMA
     Dosage: 10 MG, UID/QD
     Route: 048
     Dates: start: 20100209
  6. SELBEX [Concomitant]
     Indication: GASTRITIS
     Dosage: 0.5 G, BID
     Route: 048
     Dates: start: 20071225, end: 20101208
  7. TAMSULOSIN HCL [Suspect]
     Indication: BENIGN PROSTATIC HYPERPLASIA
     Dosage: 0.2 MG, UID/QD
     Route: 048
     Dates: start: 20060516, end: 20101208
  8. DICLOFENAC SODIUM [Concomitant]
     Dosage: 50 MG, PRN
     Route: 054
     Dates: start: 20080507, end: 20080716
  9. DRUG FOR HEART FAILURE [Concomitant]
     Route: 065
  10. SPIRIVA [Suspect]
     Indication: CHRONIC OBSTRUCTIVE PULMONARY DISEASE
     Dosage: 18 UG, UID/QD
     Route: 055
     Dates: start: 20101015, end: 20101208
  11. NORVASC [Suspect]
     Indication: HYPERTENSION
     Dosage: 5 MG, BID
     Route: 048
     Dates: start: 20040906, end: 20101208

REACTIONS (1)
  - CARDIAC FAILURE [None]
